FAERS Safety Report 21207187 (Version 1)
Quarter: 2022Q3

REPORT INFORMATION
  Report Type: Other
  Country: BR (occurrence: None)
  Receive Date: 20220812
  Receipt Date: 20220812
  Transmission Date: 20221027
  Serious: Yes (Hospitalization)
  Sender: FDA-Public Use
  Company Number: BR-ROCHE-3157617

PATIENT
  Age: 31 Year
  Sex: Female

DRUGS (3)
  1. CLONAZEPAM [Suspect]
     Active Substance: CLONAZEPAM
     Indication: Product used for unknown indication
     Dosage: 40 DROPS
     Route: 065
  2. OXYCODONE [Suspect]
     Active Substance: OXYCODONE
     Indication: Product used for unknown indication
     Route: 065
  3. METHADONE [Suspect]
     Active Substance: METHADONE HYDROCHLORIDE
     Indication: Product used for unknown indication
     Route: 065

REACTIONS (6)
  - Depressed level of consciousness [Unknown]
  - Pneumonia [Unknown]
  - Pulmonary embolism [Unknown]
  - Somnolence [Unknown]
  - Apnoea [Unknown]
  - Drug abuse [Unknown]

NARRATIVE: CASE EVENT DATE: 20210301
